FAERS Safety Report 6694493-7 (Version None)
Quarter: 2010Q2

REPORT INFORMATION
  Report Type: 
  Country: None (occurrence: None)
  Receive Date: 20100423
  Receipt Date: 20100421
  Transmission Date: 20101027
  Serious: Yes (Hospitalization, Other)
  Sender: FDA-Public Use
  Company Number: CA-ROXANE LABORATORIES, INC.-2010-RO-00452RO

PATIENT
  Age: 7 Year
  Sex: Male

DRUGS (13)
  1. ONDANSETRON [Suspect]
     Indication: PROPHYLAXIS OF NAUSEA AND VOMITING
     Route: 048
  2. HYDROMORPHONE HCL [Suspect]
     Indication: PAIN
     Route: 048
  3. HYDROMORPHONE HCL [Suspect]
     Route: 048
  4. LORAZEPAM [Suspect]
  5. GRANISETRON [Suspect]
     Indication: PROPHYLAXIS OF NAUSEA AND VOMITING
     Route: 042
  6. HYDROXYZINE [Suspect]
     Dosage: 50 MG
     Route: 048
  7. DIMENHYDRINATE [Suspect]
     Route: 042
  8. RANITIDINE [Suspect]
     Dosage: 150 MG
     Route: 048
  9. BISACODYL [Suspect]
     Route: 048
  10. DOCUSATE [Suspect]
     Route: 048
  11. IFOSFAMIDE [Suspect]
     Indication: CHEMOTHERAPY
  12. ETOPOSIDE [Suspect]
     Indication: CHEMOTHERAPY
  13. CEFUROXIME [Suspect]
     Indication: EVIDENCE BASED TREATMENT
     Route: 042

REACTIONS (2)
  - DYSKINESIA [None]
  - MOVEMENT DISORDER [None]
